FAERS Safety Report 12098116 (Version 20)
Quarter: 2017Q3

REPORT INFORMATION
  Report Type: Report from Study
  Country: CA (occurrence: US)
  Receive Date: 20160221
  Receipt Date: 20170822
  Transmission Date: 20171127
  Serious: Yes (Hospitalization, Other)
  Sender: FDA-Public Use
  Company Number: CA-ROCHE-1678562

PATIENT
  Age: 79 Year
  Sex: Female

DRUGS (14)
  1. ESBRIET [Suspect]
     Active Substance: PIRFENIDONE
     Route: 048
     Dates: start: 20140908
  2. ESBRIET [Suspect]
     Active Substance: PIRFENIDONE
     Dosage: PER DAY
     Route: 048
     Dates: start: 2016
  3. ESBRIET [Suspect]
     Active Substance: PIRFENIDONE
     Route: 048
     Dates: start: 2016
  4. ESBRIET [Suspect]
     Active Substance: PIRFENIDONE
     Dosage: DAILY
     Route: 048
     Dates: start: 20170307
  5. ESBRIET [Suspect]
     Active Substance: PIRFENIDONE
     Dosage: ON HOLD
     Route: 048
     Dates: end: 201602
  6. ESBRIET [Suspect]
     Active Substance: PIRFENIDONE
     Route: 048
     Dates: start: 20140924
  7. ESBRIET [Suspect]
     Active Substance: PIRFENIDONE
     Dosage: PER DAY
     Route: 048
     Dates: start: 2016
  8. ESBRIET [Suspect]
     Active Substance: PIRFENIDONE
     Indication: IDIOPATHIC PULMONARY FIBROSIS
     Route: 048
     Dates: start: 20140722
  9. MORPHINE [Concomitant]
     Active Substance: MORPHINE
     Indication: IDIOPATHIC PULMONARY FIBROSIS
     Dosage: PALLIATIVE CARE
     Route: 065
  10. ESBRIET [Suspect]
     Active Substance: PIRFENIDONE
     Route: 048
     Dates: start: 20140729
  11. CIPROFLOXACIN. [Suspect]
     Active Substance: CIPROFLOXACIN
     Indication: PRODUCT USED FOR UNKNOWN INDICATION
     Route: 065
  12. ESBRIET [Suspect]
     Active Substance: PIRFENIDONE
     Route: 048
     Dates: start: 20140805
  13. ESBRIET [Suspect]
     Active Substance: PIRFENIDONE
     Dosage: SEVEN PILLS DAILY.
     Route: 048
     Dates: start: 20170307
  14. TECTA [Concomitant]
     Active Substance: PANTOPRAZOLE MAGNESIUM

REACTIONS (18)
  - Dyspnoea [Not Recovered/Not Resolved]
  - Oxygen saturation decreased [Not Recovered/Not Resolved]
  - Dyspnoea exertional [Not Recovered/Not Resolved]
  - Nasopharyngitis [Not Recovered/Not Resolved]
  - Pneumonia [Not Recovered/Not Resolved]
  - Pulmonary thrombosis [Unknown]
  - Dysgeusia [Unknown]
  - Pyrexia [Unknown]
  - Sputum increased [Not Recovered/Not Resolved]
  - Productive cough [Not Recovered/Not Resolved]
  - Forced vital capacity decreased [Unknown]
  - Clostridium difficile infection [Not Recovered/Not Resolved]
  - Fatigue [Not Recovered/Not Resolved]
  - Diarrhoea [Not Recovered/Not Resolved]
  - Decreased appetite [Unknown]
  - Chills [Unknown]
  - Abdominal discomfort [Not Recovered/Not Resolved]
  - Cough [Not Recovered/Not Resolved]

NARRATIVE: CASE EVENT DATE: 2016
